FAERS Safety Report 7271891-4 (Version None)
Quarter: 2011Q1

REPORT INFORMATION
  Report Type: 
  Country: None (occurrence: None)
  Receive Date: 20110203
  Receipt Date: 20110131
  Transmission Date: 20110831
  Serious: Yes (Life-Threatening, Hospitalization)
  Sender: FDA-Public Use
  Company Number: US-JNJFOC-20101006283

PATIENT
  Age: 57 Year
  Sex: Female

DRUGS (1)
  1. NUCYNTA [Suspect]
     Indication: ILL-DEFINED DISORDER
     Route: 065

REACTIONS (4)
  - RESPIRATORY DEPRESSION [None]
  - CONVULSION [None]
  - DEPRESSED LEVEL OF CONSCIOUSNESS [None]
  - LACERATION [None]
